FAERS Safety Report 9418940 (Version 1)
Quarter: 2013Q3

REPORT INFORMATION
  Report Type: Spontaneous
  Country: FR (occurrence: FR)
  Receive Date: 20130725
  Receipt Date: 20130725
  Transmission Date: 20140515
  Serious: Yes (Hospitalization)
  Sender: FDA-Public Use
  Company Number: FR-009507513-1307FRA008017

PATIENT
  Age: 35 Year
  Sex: Female

DRUGS (6)
  1. NORSET [Suspect]
     Dosage: 15 MG, BID
     Route: 048
  2. NEO-MERCAZOLE [Suspect]
     Dosage: 40 MG, QD
     Route: 048
     Dates: start: 20130211, end: 201304
  3. NEO-MERCAZOLE [Suspect]
     Dosage: 20 MG, QD
     Route: 048
     Dates: end: 201304
  4. ZYPREXA [Suspect]
     Dosage: 7.5 MG, BID
     Route: 048
  5. SERESTA [Suspect]
     Dosage: 10 MG, QID
     Route: 048
  6. CYMBALTA [Suspect]
     Dosage: 30 MG, QD
     Route: 048

REACTIONS (1)
  - Renal failure acute [Recovered/Resolved with Sequelae]
